FAERS Safety Report 7774461-4 (Version None)
Quarter: 2011Q3

REPORT INFORMATION
  Report Type: 
  Country: None (occurrence: None)
  Receive Date: 20110923
  Receipt Date: 20110920
  Transmission Date: 20111222
  Serious: Yes (Hospitalization, Other)
  Sender: FDA-Public Use
  Company Number: GB-ROCHE-790708

PATIENT
  Sex: Female
  Weight: 11.9 kg

DRUGS (20)
  1. DOXORUBICIN HCL [Suspect]
     Indication: SARCOMA METASTATIC
     Dosage: FREQUENCY: DAYS 1 AND 2    DOSAGE: 30 MG/M2   LAST DOSE PRIOR TO SAE WAS TAKEN ON 31 AUG 2011
     Route: 042
     Dates: start: 20110712
  2. MESNA [Suspect]
     Indication: SARCOMA METASTATIC
     Dosage: FREQUENCY: DAYS 1 AND 2  DOSAGE FORM: 3600 MG/M2  LAST DOSE PRIOR TO SAE WAS TAKEN ON 09 AUG 2011
     Route: 042
     Dates: start: 20110712
  3. COTRIM [Concomitant]
     Route: 048
     Dates: start: 20110716
  4. DOCUSATE [Concomitant]
     Route: 048
     Dates: start: 20110714
  5. BEVACIZUMAB [Suspect]
     Indication: SARCOMA METASTATIC
     Dosage: FREQUENCY: DAY 1, LAST DOSE PRIOR TOSAE: 30 AUGUST 2011
     Route: 042
     Dates: start: 20110712
  6. ACETAMINOPHEN [Concomitant]
     Route: 048
     Dates: start: 20110817
  7. VINCRISTINE [Suspect]
     Indication: SARCOMA METASTATIC
     Dosage: DOSAGE CUMM: 1.5 MG/M2, FREQUENCY DAYS 1,8 AND 15 OF CYCLE LAST DOSEPRIOR TO SAE: 30 AUG 2011
     Route: 042
     Dates: start: 20110712
  8. MESNA [Suspect]
     Dosage: FREQUENCY: OD,  DOSAGE FORM: 3600 MG/M2
     Route: 042
  9. LEVOMEPROMAZINE [Concomitant]
     Route: 042
     Dates: start: 20110713
  10. MOVIPREP [Concomitant]
     Dosage: TDD: 1 SACHETS
     Dates: start: 20110901, end: 20110907
  11. GENTAMYCIN SULFATE [Concomitant]
     Route: 042
     Dates: start: 20110817, end: 20110824
  12. FLUCONAZOLE [Concomitant]
     Route: 042
  13. ONDANSETRON [Concomitant]
     Route: 048
     Dates: start: 20110817
  14. ONDANSETRON [Concomitant]
     Route: 048
     Dates: start: 20110901, end: 20110907
  15. MOVIPREP [Concomitant]
     Dosage: TDD: 2 SACHETS
     Dates: start: 20110820
  16. IFOSFAMIDE [Suspect]
     Indication: SARCOMA METASTATIC
     Dosage: FREQUENCY: DAYS 1 AND 2.   DOSAGE FORM:3G/M2   LAST DOSE PRIOR TO SAE WAS TAKEN ON 31 AUG 2011
     Route: 042
     Dates: start: 20110712
  17. DACTINOMYCIN [Suspect]
     Indication: SARCOMA METASTATIC
     Dosage: FREQUENCY: DAY 1  OF CYCLE DOSAGE: 1.5 MG/M2   LAST DOSE PRIOR TO SAE WAS TAKEN ON 30 AUG 2011
     Route: 042
     Dates: start: 20110712
  18. PIPERACILLIN AND TAZOBACTAM [Concomitant]
     Dosage: 1070 QDS
     Route: 042
     Dates: start: 20110817, end: 20110824
  19. MORPHINE [Concomitant]
     Dosage: DRUG REPORTED AS MORPHINE SULPHATE
     Route: 048
     Dates: start: 20110817
  20. NEUPOGEN [Concomitant]
     Route: 042
     Dates: start: 20110903

REACTIONS (4)
  - CANDIDA TEST POSITIVE [None]
  - EPISTAXIS [None]
  - MUCOSAL INFLAMMATION [None]
  - FEBRILE NEUTROPENIA [None]
